FAERS Safety Report 21293661 (Version 1)
Quarter: 2022Q3

REPORT INFORMATION
  Report Type: Other
  Country: DE (occurrence: None)
  Receive Date: 20220905
  Receipt Date: 20220905
  Transmission Date: 20221026
  Serious: No
  Sender: FDA-Public Use
  Company Number: DE-ROCHE-3171336

PATIENT
  Age: 41 Year
  Sex: Female

DRUGS (10)
  1. OCRELIZUMAB [Suspect]
     Active Substance: OCRELIZUMAB
     Indication: Relapsing multiple sclerosis
     Route: 042
     Dates: start: 20180515, end: 20180531
  2. OCRELIZUMAB [Suspect]
     Active Substance: OCRELIZUMAB
     Dosage: MOST RECENT DOSE PRIOR TO AE 17/JUN/2020
     Route: 042
     Dates: start: 20181129
  3. METHYLPREDNISOLONE [Concomitant]
     Active Substance: METHYLPREDNISOLONE
     Indication: Prophylaxis
     Route: 042
     Dates: start: 20180515, end: 20180515
  4. METHYLPREDNISOLONE [Concomitant]
     Active Substance: METHYLPREDNISOLONE
     Route: 042
     Dates: start: 20180531, end: 20180531
  5. METHYLPREDNISOLONE [Concomitant]
     Active Substance: METHYLPREDNISOLONE
     Indication: Prophylaxis
     Route: 042
     Dates: start: 20190528, end: 20190528
  6. METHYLPREDNISOLONE [Concomitant]
     Active Substance: METHYLPREDNISOLONE
     Route: 042
     Dates: start: 20181129, end: 20181129
  7. DIMETHINDENE [Concomitant]
     Active Substance: DIMETHINDENE
     Indication: Prophylaxis
     Route: 042
     Dates: start: 20190528, end: 20190528
  8. DIMETHINDENE [Concomitant]
     Active Substance: DIMETHINDENE
     Route: 042
     Dates: start: 20180515, end: 20180515
  9. DIMETHINDENE [Concomitant]
     Active Substance: DIMETHINDENE
     Route: 042
     Dates: start: 20181129, end: 20181129
  10. DIMETHINDENE [Concomitant]
     Active Substance: DIMETHINDENE
     Route: 042
     Dates: start: 20180531, end: 20180531

REACTIONS (1)
  - COVID-19 [Recovered/Resolved]

NARRATIVE: CASE EVENT DATE: 20220630
